FAERS Safety Report 20951940 (Version 1)
Quarter: 2022Q2

REPORT INFORMATION
  Report Type: Spontaneous
  Country: US (occurrence: None)
  Receive Date: 20220611
  Receipt Date: 20220611
  Transmission Date: 20220720
  Serious: Yes (Other)
  Sender: FDA-Public Use
  Company Number: None

PATIENT
  Age: 56 Year
  Sex: Female
  Weight: 81 kg

DRUGS (15)
  1. HOMEOPATHICS [Suspect]
     Active Substance: HOMEOPATHICS
     Indication: Snoring
     Dosage: FREQUENCY : AT BEDTIME;?
     Route: 055
     Dates: start: 20220129, end: 20220610
  2. LEVOTHYROXINE [Concomitant]
     Active Substance: LEVOTHYROXINE
  3. PRAVASTATIN [Concomitant]
     Active Substance: PRAVASTATIN
  4. VITAMINS [Concomitant]
     Active Substance: VITAMINS
  5. VITAMIN C [Concomitant]
     Active Substance: ASCORBIC ACID
  6. VITAMIN B12 [Concomitant]
     Active Substance: CYANOCOBALAMIN
  7. VITAMIN D3 [Concomitant]
     Active Substance: CHOLECALCIFEROL
  8. FISH OIL [Concomitant]
     Active Substance: FISH OIL
  9. GLUCOSAMINE [Concomitant]
     Active Substance: GLUCOSAMINE
  10. CALCIUM [Concomitant]
     Active Substance: CALCIUM
  11. HERBALS\TURMERIC [Concomitant]
     Active Substance: HERBALS\TURMERIC
  12. CRANBERRY [Concomitant]
     Active Substance: CRANBERRY
  13. HERBALS [Concomitant]
     Active Substance: HERBALS
  14. Lions Mane Mushroom [Concomitant]
  15. PROBIOTICS NOS [Concomitant]
     Active Substance: PROBIOTICS NOS

REACTIONS (6)
  - Gastrointestinal haemorrhage [None]
  - Abdominal pain upper [None]
  - Nausea [None]
  - Quality of life decreased [None]
  - Exercise lack of [None]
  - Frustration tolerance decreased [None]

NARRATIVE: CASE EVENT DATE: 20220606
